FAERS Safety Report 8503553-7 (Version None)
Quarter: 2012Q3

REPORT INFORMATION
  Report Type: 
  Country: None (occurrence: None)
  Receive Date: 20120711
  Receipt Date: 20120704
  Transmission Date: 20120928
  Serious: Yes (Death, Hospitalization)
  Sender: FDA-Public Use
  Company Number: LB-CELGENEUS-093-21880-12042029

PATIENT
  Age: 48 Year

DRUGS (4)
  1. EPREX [Concomitant]
     Route: 065
  2. REVLIMID [Suspect]
     Dosage: 10 MILLIGRAM
     Route: 048
     Dates: start: 20110825, end: 20120101
  3. VENOFEX [Concomitant]
     Route: 065
  4. AZACOL [Concomitant]
     Indication: CROHN'S DISEASE
     Route: 065

REACTIONS (2)
  - ACUTE MYELOID LEUKAEMIA [None]
  - MYELODYSPLASTIC SYNDROME TRANSFORMATION [None]
